FAERS Safety Report 6217112-2 (Version None)
Quarter: 2009Q2

REPORT INFORMATION
  Report Type: 
  Country: None (occurrence: None)
  Receive Date: 20090606
  Receipt Date: 20090525
  Transmission Date: 20091009
  Serious: Yes (Other)
  Sender: FDA-Public Use
  Company Number: CA-PFIZER INC-2009217714

PATIENT
  Age: 52 Year

DRUGS (3)
  1. CHAMPIX [Suspect]
     Dosage: UNK
     Dates: end: 20090520
  2. PRIMIDONE [Concomitant]
     Dosage: UNK
  3. EPIVAL [Concomitant]
     Dosage: UNK

REACTIONS (1)
  - EPILEPTIC AURA [None]
